FAERS Safety Report 7988687-8 (Version None)
Quarter: 2011Q4

REPORT INFORMATION
  Report Type: 
  Country: None (occurrence: None)
  Receive Date: 20111218
  Receipt Date: 20111206
  Transmission Date: 20120403
  Serious: Yes (Hospitalization, Other)
  Sender: FDA-Public Use
  Company Number: JP-ELI_LILLY_AND_COMPANY-JP201110006276

PATIENT
  Age: 47 Year
  Sex: Female

DRUGS (8)
  1. STRATTERA [Suspect]
     Dosage: 600 MG, SINGLE
     Route: 048
     Dates: start: 20111018, end: 20111018
  2. CLONAZEPAM [Concomitant]
     Indication: BIPOLAR I DISORDER
     Dosage: 130 MG, SINGLE
     Route: 048
     Dates: start: 20111018, end: 20111018
  3. STRATTERA [Suspect]
     Indication: BIPOLAR I DISORDER
     Route: 048
  4. SEROQUEL [Concomitant]
     Indication: BIPOLAR I DISORDER
     Dosage: 800 MG, SINGLE
     Route: 048
     Dates: start: 20111018, end: 20111018
  5. LITHIUM CARBONATE [Concomitant]
     Indication: BIPOLAR I DISORDER
     Dosage: 2000 MG, SINGLE
     Route: 048
     Dates: start: 20111018, end: 20111018
  6. DEPAKENE [Concomitant]
     Indication: BIPOLAR I DISORDER
     Dosage: 1600 MG, SINGLE
     Route: 048
     Dates: start: 20111018, end: 20111018
  7. FLUVOXAMINE MALEATE [Concomitant]
     Indication: BIPOLAR I DISORDER
     Dosage: 400 MG, SINGLE
     Route: 048
     Dates: start: 20111018, end: 20111018
  8. PAXIL [Concomitant]
     Indication: BIPOLAR I DISORDER
     Dosage: 200 MG, SINGLE
     Route: 048
     Dates: start: 20111018, end: 20111018

REACTIONS (5)
  - SUICIDE ATTEMPT [None]
  - OFF LABEL USE [None]
  - ACUTE RESPIRATORY DISTRESS SYNDROME [None]
  - LOSS OF CONSCIOUSNESS [None]
  - MULTIPLE DRUG OVERDOSE INTENTIONAL [None]
